FAERS Safety Report 9196214 (Version 2)
Quarter: 2013Q2

REPORT INFORMATION
  Report Type: Spontaneous
  Country: US (occurrence: None)
  Receive Date: 20120703
  Receipt Date: 20121031
  Transmission Date: 20140414
  Serious: No
  Sender: FDA-Public Use
  Company Number: PHEH2012US009021

PATIENT
  Age: 58 Year
  Sex: Female

DRUGS (2)
  1. GILENYA (FTY) CAPSULE, 0.5MG [Suspect]
     Indication: MULTIPLE SCLEROSIS
     Route: 048
     Dates: start: 201109
  2. AMANTADINE (AMANTADINE) [Concomitant]

REACTIONS (6)
  - Palpitations [None]
  - Blister [None]
  - Joint swelling [None]
  - Skin exfoliation [None]
  - Fatigue [None]
  - Chest discomfort [None]
